FAERS Safety Report 9929803 (Version 1)
Quarter: 2014Q1

REPORT INFORMATION
  Report Type: Spontaneous
  Country: US (occurrence: US)
  Receive Date: 20140227
  Receipt Date: 20140227
  Transmission Date: 20141002
  Serious: Yes (Hospitalization, Other)
  Sender: FDA-Public Use
  Company Number: US-MYLANLABS-2014S1003721

PATIENT
  Sex: Female

DRUGS (5)
  1. SOTALOL [Suspect]
  2. ZOLOFT [Suspect]
  3. ATIVAN [Concomitant]
  4. COUMADIN [Concomitant]
  5. REMERON [Concomitant]

REACTIONS (2)
  - Chest discomfort [Not Recovered/Not Resolved]
  - Anxiety [Not Recovered/Not Resolved]
